FAERS Safety Report 12529793 (Version 1)
Quarter: 2016Q3

REPORT INFORMATION
  Report Type: Spontaneous
  Country: US (occurrence: None)
  Receive Date: 20160705
  Receipt Date: 20160705
  Transmission Date: 20161109
  Serious: Yes (Hospitalization, Other)
  Sender: FDA-Public Use
  Company Number: None

PATIENT
  Age: 13 Year
  Sex: Male

DRUGS (1)
  1. LEVETIRACETAM. [Suspect]
     Active Substance: LEVETIRACETAM
     Indication: SEIZURE
     Dosage: 9 ML BID G-TUBE
     Dates: start: 20141202, end: 20160701

REACTIONS (3)
  - Weight decreased [None]
  - Vomiting [None]
  - Product contamination microbial [None]

NARRATIVE: CASE EVENT DATE: 20160630
